FAERS Safety Report 4282719-9 (Version None)
Quarter: 2004Q1

REPORT INFORMATION
  Report Type: 
  Country: None (occurrence: None)
  Receive Date: 20040130
  Receipt Date: 20030402
  Transmission Date: 20041129
  Serious: No
  Sender: FDA-Public Use
  Company Number: US-BRISTOL-MYERS SQUIBB COMPANY-12230116

PATIENT
  Age: 50 Year
  Sex: Female
  Weight: 57 kg

DRUGS (7)
  1. SERZONE [Suspect]
     Indication: DEPRESSION
     Dosage: 50MG ONCE DAILY;PERIODICALLY INCREASED BY 50 MG INCREMENTS; THERAPY SINCE ABOUT 4 TO 5 YEARS AGO
     Route: 048
  2. SERZONE [Suspect]
     Indication: SUICIDAL IDEATION
     Dosage: 50MG ONCE DAILY;PERIODICALLY INCREASED BY 50 MG INCREMENTS; THERAPY SINCE ABOUT 4 TO 5 YEARS AGO
     Route: 048
  3. TRAZODONE HCL [Concomitant]
  4. ADDERALL 10 [Concomitant]
  5. ESTRADIOL [Concomitant]
  6. PROGESTERONE [Concomitant]
  7. CLARITIN-D [Concomitant]

REACTIONS (4)
  - CHROMATURIA [None]
  - DRUG INEFFECTIVE [None]
  - FLATULENCE [None]
  - URINE ABNORMALITY [None]
